FAERS Safety Report 13361258 (Version 2)
Quarter: 2017Q2

REPORT INFORMATION
  Report Type: Spontaneous
  Country: US (occurrence: US)
  Receive Date: 20170322
  Receipt Date: 20170424
  Transmission Date: 20170830
  Serious: Yes (Hospitalization)
  Sender: FDA-Public Use
  Company Number: US-009507513-1703USA005974

PATIENT
  Sex: Male
  Weight: 78.47 kg

DRUGS (8)
  1. PERCOCET [Suspect]
     Active Substance: ACETAMINOPHEN\OXYCODONE HYDROCHLORIDE
     Indication: BACK PAIN
     Dosage: 10/325 MG, UNKNOWN
  2. PRINIVIL [Suspect]
     Active Substance: LISINOPRIL
     Indication: HYPERTENSION
     Dosage: 10 MG, ONE TABLET BY MOUTH DAILY; 10 YEARS AGO
     Route: 048
     Dates: start: 2006
  3. EFFEXOR XR [Suspect]
     Active Substance: VENLAFAXINE HYDROCHLORIDE
     Indication: DEPRESSION
     Dosage: 75MG THREE CAPSULES BY MY MOUTH DAILY
     Route: 048
     Dates: end: 201702
  4. ABILIFY [Concomitant]
     Active Substance: ARIPIPRAZOLE
     Indication: ADJUVANT THERAPY
     Dosage: 5MG ONE TABLET BY MOUTH A DAY; HE REFERRED TO THIS MEDICATION AS ABILITY AS WELL.
     Route: 048
     Dates: start: 201610
  5. ALPRAZOLAM. [Concomitant]
     Active Substance: ALPRAZOLAM
     Indication: ANXIETY
     Dosage: 1MG, ONE HALF OF A TABLET BY MOUTH TWICE A DAY; START DATE: 15 YEARS AGO
     Route: 048
     Dates: start: 2002
  6. OMEPRAZOLE. [Concomitant]
     Active Substance: OMEPRAZOLE
     Indication: DYSPEPSIA
     Dosage: 20MG ONE CAPSULE BY MOUTH DAILY
     Route: 048
     Dates: start: 201606
  7. PERCOCET [Suspect]
     Active Substance: ACETAMINOPHEN\OXYCODONE HYDROCHLORIDE
     Indication: SCIATICA
  8. CALCIUM (UNSPECIFIED) [Concomitant]
     Active Substance: CALCIUM
     Indication: SUPPLEMENTATION THERAPY
     Dosage: 20MG ONE TABLET BY MOUTH A DAY; START DATE: ABOUT ONE YEAR AGO
     Route: 048
     Dates: start: 2016

REACTIONS (3)
  - Illusion [Recovered/Resolved]
  - Overdose [Unknown]
  - Renal disorder [Unknown]

NARRATIVE: CASE EVENT DATE: 2016
